FAERS Safety Report 9016830 (Version 2)
Quarter: 2013Q1

REPORT INFORMATION
  Report Type: Report from Study
  Country: CA (occurrence: CA)
  Receive Date: 20130117
  Receipt Date: 20130215
  Transmission Date: 20140127
  Serious: Yes (Hospitalization)
  Sender: FDA-Public Use
  Company Number: CA-JNJFOC-20130105242

PATIENT
  Age: 38 None
  Sex: Male
  Weight: 78 kg

DRUGS (12)
  1. REMICADE [Suspect]
     Indication: CROHN^S DISEASE
     Route: 042
     Dates: start: 20120319
  2. HYDROCORTISONE [Concomitant]
     Indication: PREMEDICATION
     Route: 042
  3. BENADRYL [Concomitant]
     Indication: PREMEDICATION
     Dosage: 25-50MG GIVEN PER ORAL OR INTRAVENOUSLY
     Route: 065
  4. LOMOTIL [Concomitant]
     Indication: DIARRHOEA
     Route: 065
  5. QUESTRAN [Concomitant]
     Indication: DIARRHOEA
     Dosage: 1 PACKAGE
     Route: 065
  6. TYLENOL 3 [Concomitant]
     Indication: DIARRHOEA
     Dosage: 1-2 DOSE AS NECESSARY
     Route: 065
  7. PANTOLOC [Concomitant]
     Route: 065
  8. TRAZODONE [Concomitant]
     Route: 065
  9. TYLENOL EXTRA STRENGTH [Concomitant]
     Dosage: 2 TABLETS 4 TIMES A DAY
     Route: 065
  10. IMURAN [Concomitant]
     Route: 065
  11. ZOFRAN [Concomitant]
     Route: 065
  12. TALWIN NOS [Concomitant]
     Dosage: 1-2 DOSE AS NECESSARY
     Route: 065

REACTIONS (2)
  - Ileostomy [Recovered/Resolved]
  - Incision site complication [Recovering/Resolving]
